FAERS Safety Report 16418264 (Version 3)
Quarter: 2020Q1

REPORT INFORMATION
  Report Type: Spontaneous
  Country: CA (occurrence: CA)
  Receive Date: 20190612
  Receipt Date: 20200319
  Transmission Date: 20200409
  Serious: Yes (Life-Threatening, Hospitalization, Other)
  Sender: FDA-Public Use
  Company Number: CA-AUROBINDO-AUR-APL-2019-031939

PATIENT
  Age: 25 Year
  Sex: Female
  Weight: 50 kg

DRUGS (6)
  1. GABAPENTIN. [Suspect]
     Active Substance: GABAPENTIN
     Indication: DEPRESSION
     Dosage: UNK
     Route: 065
  2. FLUOXETINE [Suspect]
     Active Substance: FLUOXETINE HYDROCHLORIDE
     Indication: DEPRESSION
     Dosage: UNK
     Route: 065
  3. OLANZAPINE. [Suspect]
     Active Substance: OLANZAPINE
     Indication: DEPRESSION
     Dosage: UNK
     Route: 065
  4. QUETIAPINE FILM-COATED TABLET [Suspect]
     Active Substance: QUETIAPINE
     Indication: DEPRESSION
     Dosage: UNK
     Route: 065
  5. AMITRIPTYLINE [Suspect]
     Active Substance: AMITRIPTYLINE
     Indication: PRODUCT USED FOR UNKNOWN INDICATION
     Dosage: UNK
     Route: 048
  6. CIPRALEX [Suspect]
     Active Substance: ESCITALOPRAM OXALATE
     Indication: DEPRESSION
     Dosage: UNK
     Route: 065

REACTIONS (15)
  - Electrocardiogram QRS complex prolonged [Recovered/Resolved]
  - Hypocalcaemia [Recovered/Resolved]
  - Intentional overdose [Recovered/Resolved]
  - Cardiotoxicity [Unknown]
  - Off label use [Unknown]
  - Hypokalaemia [Recovered/Resolved]
  - Tachycardia [Recovered/Resolved]
  - Haemodynamic instability [Unknown]
  - Hypotension [Unknown]
  - Product use in unapproved indication [Unknown]
  - Coma [Recovered/Resolved]
  - Suicide attempt [Recovered/Resolved]
  - Pulse absent [Recovered/Resolved]
  - Electrocardiogram QT prolonged [Recovered/Resolved]
  - Blood pressure systolic decreased [Recovered/Resolved]
